FAERS Safety Report 26006951 (Version 1)
Quarter: 2025Q4

REPORT INFORMATION
  Report Type: Spontaneous
  Country: US (occurrence: US)
  Receive Date: 20251106
  Receipt Date: 20251106
  Transmission Date: 20260118
  Serious: Yes (Other)
  Sender: PFIZER
  Company Number: US-PFIZER INC-PV202500128875

PATIENT
  Age: 48 Year
  Sex: Male

DRUGS (14)
  1. PAXLOVID [Suspect]
     Active Substance: NIRMATRELVIR\RITONAVIR
     Indication: COVID-19 treatment
     Dosage: UNK
  2. AYVAKIT [Suspect]
     Active Substance: AVAPRITINIB
     Indication: Advanced systemic mastocytosis
     Dosage: 25 MG, 1X/DAY
     Route: 048
  3. BENADRYL [Suspect]
     Active Substance: DIPHENHYDRAMINE HYDROCHLORIDE
     Dosage: 50 MG, DAILY
  4. NEBIVOLOL [Suspect]
     Active Substance: NEBIVOLOL
     Dosage: UNK
  5. CETIRIZINE [Concomitant]
     Active Substance: CETIRIZINE HYDROCHLORIDE
  6. CYCLOBENZAPRINE [Concomitant]
     Active Substance: CYCLOBENZAPRINE
  7. EPINEPHRINE [Concomitant]
     Active Substance: EPINEPHRINE
  8. FAMOTIDINE [Concomitant]
     Active Substance: FAMOTIDINE
  9. PLAVIX [Concomitant]
     Active Substance: CLOPIDOGREL BISULFATE
  10. TRAMADOL [Concomitant]
     Active Substance: TRAMADOL
  11. ULORIC [Concomitant]
     Active Substance: FEBUXOSTAT
  12. VALIUM [Concomitant]
     Active Substance: DIAZEPAM
  13. ZOFRAN [Concomitant]
     Active Substance: ONDANSETRON HYDROCHLORIDE
  14. LOSARTAN [Concomitant]
     Active Substance: LOSARTAN

REACTIONS (21)
  - Haemorrhage [Not Recovered/Not Resolved]
  - Viral infection [Recovered/Resolved]
  - Vomiting [Not Recovered/Not Resolved]
  - Diarrhoea [Not Recovered/Not Resolved]
  - Gout [Not Recovered/Not Resolved]
  - Hypotension [Not Recovered/Not Resolved]
  - Hypertension [Recovered/Resolved]
  - Blood cholesterol increased [Not Recovered/Not Resolved]
  - Memory impairment [Not Recovered/Not Resolved]
  - Somnambulism [Not Recovered/Not Resolved]
  - Sleep talking [Not Recovered/Not Resolved]
  - Lagophthalmos [Not Recovered/Not Resolved]
  - Cyanosis [Not Recovered/Not Resolved]
  - Hair colour changes [Not Recovered/Not Resolved]
  - White blood cell count decreased [Not Recovered/Not Resolved]
  - Red blood cell count decreased [Not Recovered/Not Resolved]
  - Eructation [Not Recovered/Not Resolved]
  - Emotional disorder [Not Recovered/Not Resolved]
  - Illness [Not Recovered/Not Resolved]
  - Feeling abnormal [Not Recovered/Not Resolved]
  - Weight decreased [Not Recovered/Not Resolved]

NARRATIVE: CASE EVENT DATE: 20250101
